FAERS Safety Report 6580177-2 (Version None)
Quarter: 2010Q1

REPORT INFORMATION
  Report Type: 
  Country: None (occurrence: None)
  Receive Date: 20100212
  Receipt Date: 20100205
  Transmission Date: 20100710
  Serious: Yes (Death, Other)
  Sender: FDA-Public Use
  Company Number: GB-WATSON-2010-01522

PATIENT
  Age: 79 Year
  Sex: Male

DRUGS (15)
  1. SIMVASTATIN [Suspect]
     Indication: BLOOD CHOLESTEROL INCREASED
     Dosage: 20 MG, DAILY
     Route: 048
     Dates: end: 20070305
  2. CHLORPHENIRAMINE                   /00072501/ [Suspect]
     Indication: ADVERSE DRUG REACTION
     Dosage: 4 MG, TID
     Route: 048
     Dates: start: 20070228, end: 20070307
  3. QUININE SULFATE [Suspect]
     Indication: MUSCLE SPASMS
     Dosage: 300 MG, DAILY
     Route: 048
     Dates: start: 20070216, end: 20070309
  4. TIGECYCLINE [Suspect]
     Indication: ENTEROBACTER INFECTION
     Dosage: 100 MG, DAILY
     Route: 042
     Dates: start: 20070305, end: 20070305
  5. TIGECYCLINE [Suspect]
     Indication: STAPHYLOCOCCAL INFECTION
     Dosage: 50 MG, BID
     Route: 042
     Dates: start: 20070306, end: 20070307
  6. TIGECYCLINE [Suspect]
     Dosage: 100 MG, DAILY
     Route: 042
     Dates: start: 20070310, end: 20070321
  7. TIGECYCLINE [Suspect]
     Dosage: 50 MG, BID
     Route: 042
  8. ASPIRIN [Concomitant]
     Indication: DRUG USE FOR UNKNOWN INDICATION
     Dosage: 75 MG, DAILY
     Dates: end: 20070321
  9. CIPROFLOXACIN [Concomitant]
     Indication: DRUG USE FOR UNKNOWN INDICATION
     Dosage: 750 MG, 2/WEEK
     Dates: start: 20070316, end: 20070321
  10. CO-AMOXICLAV                       /00756801/ [Concomitant]
     Indication: DRUG USE FOR UNKNOWN INDICATION
     Dosage: 1.2 G, TID
     Dates: start: 20070310, end: 20070313
  11. FOLIC ACID [Concomitant]
     Indication: DRUG USE FOR UNKNOWN INDICATION
     Dosage: 5 MG, DAILY
     Dates: end: 20070321
  12. FRAGMIN [Concomitant]
     Indication: DRUG USE FOR UNKNOWN INDICATION
     Dosage: 25000 IU, UNK
     Dates: start: 20070203
  13. LANSOPRAZOLE [Concomitant]
     Indication: DRUG USE FOR UNKNOWN INDICATION
     Dosage: 30 MG, DAILY
     Dates: end: 20070321
  14. LEVOTHYROXINE SODIUM [Concomitant]
     Indication: DRUG USE FOR UNKNOWN INDICATION
     Dosage: 50 MCG, UNK
     Dates: start: 20070118
  15. MORPHINE SULFATE [Concomitant]
     Indication: DRUG USE FOR UNKNOWN INDICATION
     Dosage: 20 MG, BID
     Dates: start: 20070302

REACTIONS (4)
  - ALANINE AMINOTRANSFERASE INCREASED [None]
  - BLOOD ALKALINE PHOSPHATASE INCREASED [None]
  - BLOOD BILIRUBIN INCREASED [None]
  - DEATH [None]
